FAERS Safety Report 12167255 (Version 1)
Quarter: 2016Q1

REPORT INFORMATION
  Report Type: Spontaneous
  Country: KR (occurrence: KR)
  Receive Date: 20160310
  Receipt Date: 20160310
  Transmission Date: 20160526
  Serious: Yes (Death)
  Sender: FDA-Public Use
  Company Number: KR-ROCHE-1724016

PATIENT
  Age: 76 Year
  Sex: Female

DRUGS (1)
  1. BONVIVA [Suspect]
     Active Substance: IBANDRONATE SODIUM
     Indication: OSTEOPOROSIS
     Dosage: 07/DEC/2012, 07/MAR/2013, 07/JUN/2013, 07/SEP/2013, 07/DEC/2013, 07/MAR/2014, 07/JUN/2014, 10/SEP/20
     Route: 065
     Dates: start: 20120907

REACTIONS (1)
  - Death [Fatal]

NARRATIVE: CASE EVENT DATE: 20151228
